FAERS Safety Report 6523553-6 (Version None)
Quarter: 2009Q4

REPORT INFORMATION
  Report Type: 
  Country: None (occurrence: None)
  Receive Date: 20091231
  Receipt Date: 20091225
  Transmission Date: 20100525
  Serious: Yes (Death)
  Sender: FDA-Public Use
  Company Number: JP-NOVOPROD-302543

PATIENT
  Age: 70 Year
  Sex: Male
  Weight: 60 kg

DRUGS (1)
  1. NOVOSEVEN [Suspect]
     Indication: HAEMOSTASIS
     Dosage: 4.8MG X 2
     Route: 042
     Dates: start: 20091217, end: 20091217

REACTIONS (1)
  - MULTI-ORGAN FAILURE [None]
